FAERS Safety Report 7719607-9 (Version None)
Quarter: 2011Q3

REPORT INFORMATION
  Report Type: 
  Country: None (occurrence: None)
  Receive Date: 20110830
  Receipt Date: 20110826
  Transmission Date: 20111222
  Serious: Yes (Other)
  Sender: FDA-Public Use
  Company Number: CH-BRISTOL-MYERS SQUIBB COMPANY-16009037

PATIENT
  Age: 51 Year
  Sex: Male

DRUGS (5)
  1. EFAVIRENZ [Suspect]
     Indication: HIV INFECTION
     Dosage: 1DF:600 UNITS NOS
     Route: 048
     Dates: start: 20060829, end: 20110411
  2. RALTEGRAVIR [Suspect]
     Indication: HIV INFECTION
     Dosage: 1DF:800 UNITS NOS
     Route: 048
     Dates: start: 20100201
  3. ATAZANAVIR [Suspect]
     Indication: HIV INFECTION
     Dosage: 1DF:400 UNITS NOS
     Route: 048
     Dates: start: 20060829, end: 20110411
  4. VIREAD [Suspect]
     Indication: HIV INFECTION
     Dosage: 1DF:245 UNITS NOS
     Route: 048
     Dates: start: 20060829, end: 20110411
  5. RITONAVIR [Suspect]
     Indication: HIV INFECTION
     Dosage: 1DF:100 UNITS NOS
     Route: 048
     Dates: start: 19980316

REACTIONS (1)
  - RENAL TUBULAR DISORDER [None]
